FAERS Safety Report 20727636 (Version 1)
Quarter: 2022Q2

REPORT INFORMATION
  Report Type: Spontaneous
  Country: US (occurrence: None)
  Receive Date: 20220419
  Receipt Date: 20220419
  Transmission Date: 20220720
  Serious: No
  Sender: FDA-Public Use
  Company Number: US-ROCHE-2953216

PATIENT

DRUGS (1)
  1. AVASTIN [Suspect]
     Active Substance: BEVACIZUMAB
     Indication: Retinal vein occlusion
     Route: 031

REACTIONS (6)
  - Unevaluable event [Unknown]
  - Injection site pain [Unknown]
  - Depressed mood [Unknown]
  - Injection site pain [Unknown]
  - Visual impairment [Unknown]
  - Intentional product use issue [Unknown]
